FAERS Safety Report 21393786 (Version 2)
Quarter: 2022Q4

REPORT INFORMATION
  Report Type: Spontaneous
  Country: US (occurrence: US)
  Receive Date: 20220930
  Receipt Date: 20221006
  Transmission Date: 20230112
  Serious: Yes (Hospitalization, Other)
  Sender: FDA-Public Use
  Company Number: US-GLENMARK PHARMACEUTICALS-2022GMK075240

PATIENT
  Age: 68 Year
  Sex: Female

DRUGS (10)
  1. TACROLIMUS [Suspect]
     Active Substance: TACROLIMUS
     Indication: Immunosuppressant drug therapy
     Dosage: UNK, 1/1, POD 1 AND 2
     Route: 060
     Dates: start: 2022, end: 2022
  2. TACROLIMUS [Suspect]
     Active Substance: TACROLIMUS
     Dosage: UNK, 1/2,  POD 3
     Route: 060
     Dates: start: 2022, end: 2022
  3. TACROLIMUS [Suspect]
     Active Substance: TACROLIMUS
     Dosage: UNK, 2/1, POD 4 AND 5
     Route: 060
     Dates: start: 2022, end: 2022
  4. TACROLIMUS [Suspect]
     Active Substance: TACROLIMUS
     Dosage: UNK, 2/2,  POD 6, 11, 12, 13, 14
     Route: 060
     Dates: start: 2022, end: 2022
  5. TACROLIMUS [Suspect]
     Active Substance: TACROLIMUS
     Dosage: UNK, 3/3, POD 7, 8, 9, 10
     Route: 060
     Dates: start: 2022, end: 2022
  6. MYCOPHENOLIC ACID [Concomitant]
     Active Substance: MYCOPHENOLIC ACID
     Indication: Immunosuppressant drug therapy
     Dosage: 1 GRAM, BID
     Route: 065
     Dates: start: 2022
  7. METHYLPREDNISOLONE [Concomitant]
     Active Substance: METHYLPREDNISOLONE
     Indication: Immunosuppressant drug therapy
     Dosage: UNK
     Route: 065
     Dates: start: 2022
  8. METHYLPREDNISOLONE [Concomitant]
     Active Substance: METHYLPREDNISOLONE
     Dosage: UNK
     Route: 065
     Dates: start: 202203
  9. MELATONIN [Concomitant]
     Active Substance: MELATONIN
     Indication: Postoperative delirium
     Dosage: 5 MILLIGRAM
     Route: 065
     Dates: start: 2022
  10. MELATONIN [Concomitant]
     Active Substance: MELATONIN
     Indication: Sleep disorder
     Dosage: 10 MILLIGRAM
     Route: 065
     Dates: start: 2022

REACTIONS (5)
  - Dysarthria [Recovered/Resolved]
  - Encephalopathy [Recovered/Resolved]
  - Toxicity to various agents [Recovered/Resolved]
  - Tremor [Recovered/Resolved]
  - Dysphagia [Recovered/Resolved]

NARRATIVE: CASE EVENT DATE: 20220101
